FAERS Safety Report 4918809-4 (Version None)
Quarter: 2006Q1

REPORT INFORMATION
  Report Type: 
  Country: None (occurrence: None)
  Receive Date: 20060221
  Receipt Date: 20060221
  Transmission Date: 20060701
  Serious: Yes (Life-Threatening)
  Sender: FDA-Public Use
  Company Number: None

PATIENT
  Sex: Male
  Weight: 71.6683 kg

DRUGS (6)
  1. PACLITAXEL [Suspect]
     Indication: LUNG CANCER METASTATIC
     Dosage: 170 MG  IV
     Route: 042
     Dates: start: 20060110, end: 20060131
  2. BENADRYL [Concomitant]
  3. ZANTAC [Concomitant]
  4. ZOFRAN [Concomitant]
  5. DECADRON SRC [Concomitant]
  6. MORPHINE [Concomitant]

REACTIONS (6)
  - BLOOD PRESSURE SYSTOLIC INCREASED [None]
  - INFUSION RELATED REACTION [None]
  - MUSCLE RIGIDITY [None]
  - PALLOR [None]
  - RESPIRATION ABNORMAL [None]
  - UNRESPONSIVE TO VERBAL STIMULI [None]
